FAERS Safety Report 9917798 (Version 2)
Quarter: 2014Q2

REPORT INFORMATION
  Report Type: Spontaneous
  Country: US (occurrence: US)
  Receive Date: 20140221
  Receipt Date: 20140623
  Transmission Date: 20141212
  Serious: No
  Sender: FDA-Public Use
  Company Number: US-PFIZER INC-2014049000

PATIENT
  Age: 57 Year
  Sex: Male

DRUGS (4)
  1. AMLODIPINE BESILATE [Suspect]
     Indication: BLOOD PRESSURE ABNORMAL
     Dosage: 10 MG, 1X/DAY (EACH MORNING)
  2. AMLODIPINE BESILATE [Suspect]
     Dosage: TWEAKED DOSE
     Dates: end: 2014
  3. LOSARTAN POTASSIUM [Suspect]
     Indication: BLOOD PRESSURE ABNORMAL
     Dosage: 100 MG, 1X/DAY (EACH MORNING)
  4. LOSARTAN POTASSIUM [Suspect]
     Dosage: TWEAKED DOSE
     Dates: end: 2014

REACTIONS (1)
  - Drug ineffective [Unknown]
